FAERS Safety Report 21171551 (Version 2)
Quarter: 2025Q3

REPORT INFORMATION
  Report Type: Spontaneous
  Country: EU (occurrence: EU)
  Receive Date: 20220804
  Receipt Date: 20250818
  Transmission Date: 20251021
  Serious: Yes (Other)
  Sender: AUROBINDO
  Company Number: EU-VITABALANS-031-2022

PATIENT
  Age: 59 Year
  Sex: Female

DRUGS (9)
  1. FLUOXETINE [Suspect]
     Active Substance: FLUOXETINE HYDROCHLORIDE
     Indication: Depression
     Route: 065
  2. PREGABALIN [Suspect]
     Active Substance: PREGABALIN
     Indication: Mental disorder
     Route: 065
  3. PREGABALIN [Suspect]
     Active Substance: PREGABALIN
     Route: 065
  4. PREGABALIN [Suspect]
     Active Substance: PREGABALIN
     Route: 065
  5. PREGABALIN [Suspect]
     Active Substance: PREGABALIN
     Dosage: 75 MILLIGRAM, TWO TIMES A DAY
     Route: 065
     Dates: start: 202009
  6. SULPIRIDE [Suspect]
     Active Substance: SULPIRIDE
     Indication: Mental disorder
     Route: 065
  7. HYDROXYZINE [Suspect]
     Active Substance: HYDROXYZINE HYDROCHLORIDE
     Indication: Mental disorder
     Route: 065
  8. MIANSERIN [Concomitant]
     Active Substance: MIANSERIN
     Indication: Product used for unknown indication
     Route: 065
  9. MIANSERIN [Concomitant]
     Active Substance: MIANSERIN
     Dosage: 60 MILLIGRAM, ONCE A DAY
     Route: 065

REACTIONS (5)
  - Hepatic enzyme increased [Unknown]
  - Enuresis [Unknown]
  - Sedation complication [Unknown]
  - Drug ineffective [Unknown]
  - Drug intolerance [Unknown]
